FAERS Safety Report 8530374 (Version 7)
Quarter: 2012Q4

REPORT INFORMATION
  Report Type: 
  Country: FR (occurrence: FR)
  Receive Date: 20120425
  Receipt Date: 20121101
  Transmission Date: 20130627
  Serious: Yes (Life-Threatening)
  Sender: FDA-Public Use
  Company Number: FR-PURDUE-GBR-2012-0010471

PATIENT
  Age: 23 Year
  Sex: Male

DRUGS (2)
  1. OXYCONTIN LP, COMPRIME PELLICULE A LIBERATION PROLONGEE [Suspect]
     Indication: INTENTIONAL SELF-INJURY
     Dosage: 40 mg, 8 times a day
     Route: 048
     Dates: start: 20120401, end: 20120401
  2. IXPRIM [Suspect]
     Indication: INTENTIONAL SELF-INJURY
     Dosage: 8 DF, single
     Route: 048
     Dates: start: 20120401, end: 20120401

REACTIONS (9)
  - Rhabdomyolysis [Recovered/Resolved]
  - Hypoxic-ischaemic encephalopathy [Unknown]
  - Renal failure acute [Recovered/Resolved]
  - Liver injury [Unknown]
  - Hyperglycaemia [Unknown]
  - Coma [Recovered/Resolved]
  - Respiratory acidosis [Recovered/Resolved]
  - Miosis [Recovered/Resolved]
  - Suicide attempt [Unknown]
